FAERS Safety Report 5533773-5 (Version None)
Quarter: 2007Q4

REPORT INFORMATION
  Report Type: 
  Country: None (occurrence: None)
  Receive Date: 20071129
  Receipt Date: 20071114
  Transmission Date: 20080405
  Serious: Yes (Hospitalization, Other)
  Sender: FDA-Public Use
  Company Number: 430002M07FRA

PATIENT
  Age: 46 Year
  Sex: Female

DRUGS (2)
  1. NOVANTRONE [Suspect]
     Indication: MULTIPLE SCLEROSIS
     Dosage: 20 MG, 1 IN 1 CYCLE, INTRAVENOUS
     Route: 042
     Dates: start: 19960801, end: 19970401
  2. AZATHIOPRINE SODIUM [Suspect]
     Indication: MULTIPLE SCLEROSIS
     Dosage: 75 MG, DAYS, ORAL
     Route: 048
     Dates: start: 19970101, end: 20061201

REACTIONS (5)
  - ACUTE MYELOID LEUKAEMIA [None]
  - BONE MARROW TRANSPLANT [None]
  - HEPATOSPLENOMEGALY [None]
  - PANCYTOPENIA [None]
  - POLYCYSTIC LIVER DISEASE [None]
